FAERS Safety Report 8756244 (Version 1)
Quarter: 2012Q4

REPORT INFORMATION
  Report Type: 
  Country: BR (occurrence: BR)
  Receive Date: 20120828
  Receipt Date: 20120828
  Transmission Date: 20130627
  Serious: Yes (Hospitalization, Other)
  Sender: FDA-Public Use
  Company Number: PHHY2012BR073729

PATIENT
  Sex: Male
  Weight: 75 kg

DRUGS (1)
  1. TRILEPTAL [Suspect]
     Indication: CONVULSION
     Dosage: 3 DF, QD
     Route: 048
     Dates: start: 2010

REACTIONS (1)
  - Joint injury [Recovering/Resolving]
